FAERS Safety Report 6766000-1 (Version None)
Quarter: 2010Q2

REPORT INFORMATION
  Report Type: 
  Country: None (occurrence: None)
  Receive Date: 20100611
  Receipt Date: 20100604
  Transmission Date: 20101027
  Serious: Yes (Hospitalization)
  Sender: FDA-Public Use
  Company Number: A0790874A

PATIENT
  Age: 64 Year
  Sex: Male
  Weight: 131.8 kg

DRUGS (6)
  1. AVANDIA [Suspect]
     Route: 048
     Dates: start: 19990901, end: 20070601
  2. NEXIUM [Concomitant]
  3. TRICOR [Concomitant]
  4. AVAPRO [Concomitant]
  5. ALLEGRA [Concomitant]
  6. GLIPIZIDE [Concomitant]

REACTIONS (2)
  - ATRIAL FIBRILLATION [None]
  - CARDIAC FAILURE CONGESTIVE [None]
